FAERS Safety Report 20840987 (Version 1)
Quarter: 2022Q2

REPORT INFORMATION
  Report Type: Spontaneous
  Country: US (occurrence: US)
  Receive Date: 20220517
  Receipt Date: 20220517
  Transmission Date: 20220721
  Serious: Yes (Other)
  Sender: FDA-Public Use
  Company Number: US-PFIZER INC-202200701927

PATIENT
  Age: 90 Year
  Sex: Male

DRUGS (1)
  1. PAXLOVID [Suspect]
     Active Substance: NIRMATRELVIR\RITONAVIR
     Indication: COVID-19 treatment
     Dosage: 2 DF, 2X/DAY (TWO PILLS TWICE A DAY)
     Dates: start: 20220506

REACTIONS (3)
  - Urinary retention [Unknown]
  - Dry skin [Unknown]
  - Dizziness [Unknown]

NARRATIVE: CASE EVENT DATE: 20220511
